FAERS Safety Report 21713629 (Version 1)
Quarter: 2022Q4

REPORT INFORMATION
  Report Type: Spontaneous
  Country: US (occurrence: US)
  Receive Date: 20221212
  Receipt Date: 20221212
  Transmission Date: 20230112
  Serious: No
  Sender: FDA-Public Use
  Company Number: US-AMERICAN REGENT INC-2022001845

PATIENT
  Age: 39 Year
  Sex: Female
  Weight: 65.2 kg

DRUGS (8)
  1. VENOFER [Suspect]
     Active Substance: IRON SUCROSE
     Indication: Iron deficiency anaemia
     Dosage: 300 MG IN SODIUM CHLORIDE 0.9% (NS) 250 ML IVPB
     Route: 042
     Dates: start: 20180510, end: 20180510
  2. VENOFER [Suspect]
     Active Substance: IRON SUCROSE
     Dosage: 300 MG IN SODIUM CHLORIDE 0.9% (NS) 250 ML IVPB
     Route: 042
     Dates: start: 20180517, end: 20180517
  3. VENOFER [Suspect]
     Active Substance: IRON SUCROSE
     Dosage: 300 MG IN SODIUM CHLORIDE 0.9% (NS) 250 ML IVPB
     Route: 042
     Dates: start: 20180524, end: 20180524
  4. VENOFER [Suspect]
     Active Substance: IRON SUCROSE
     Dosage: 300 MG IN SODIUM CHLORIDE 0.9% (NS) 250 ML IVPB
     Route: 042
     Dates: start: 20180531, end: 20180531
  5. ROBAXIN [Concomitant]
     Active Substance: METHOCARBAMOL
     Indication: Product used for unknown indication
     Dosage: TAKE 1 TABLET BY MOUTH 2 TIMES DAILY. - ORAL
     Route: 048
     Dates: start: 20180316, end: 20180524
  6. ANAPROX DS [Concomitant]
     Active Substance: NAPROXEN SODIUM
     Indication: Product used for unknown indication
     Dosage: TAKE 1 TABLET BY MOUTH EVERY 12 HOURS AS NEEDED. - ORAL
     Route: 048
     Dates: start: 20180316, end: 20180524
  7. PERCOCET [Concomitant]
     Active Substance: ACETAMINOPHEN\OXYCODONE HYDROCHLORIDE
     Indication: Product used for unknown indication
     Dosage: TAKE 2 TABLETS (5-325 MG PER TABLET) BY MOUTH EVERY 4 HOURS AS NEEDED. - ORAL
     Route: 048
     Dates: start: 20170510, end: 20180524
  8. PROZAC [Concomitant]
     Active Substance: FLUOXETINE HYDROCHLORIDE
     Indication: Product used for unknown indication
     Dosage: TAKE 20 MG BY MOUTH DAILY. - ORAL
     Route: 048
     Dates: end: 20180524

REACTIONS (2)
  - Nausea [Unknown]
  - Incorrect product administration duration [Unknown]

NARRATIVE: CASE EVENT DATE: 20180501
